FAERS Safety Report 25160865 (Version 1)
Quarter: 2025Q2

REPORT INFORMATION
  Report Type: Spontaneous
  Country: US (occurrence: None)
  Receive Date: 20250403
  Receipt Date: 20250403
  Transmission Date: 20250716
  Serious: Yes (Hospitalization)
  Sender: FDA-CTU
  Company Number: None

PATIENT
  Age: 75 Year
  Sex: Female
  Weight: 70.3 kg

DRUGS (2)
  1. CEFTRIAXONE SODIUM [Suspect]
     Active Substance: CEFTRIAXONE SODIUM
     Indication: Urinary tract infection
     Dates: start: 20250327, end: 20250327
  2. CEFTRIAXONE SODIUM [Suspect]
     Active Substance: CEFTRIAXONE SODIUM
     Indication: Sepsis

REACTIONS (1)
  - Anaphylactic reaction [None]

NARRATIVE: CASE EVENT DATE: 20250327
